FAERS Safety Report 4968028-0 (Version None)
Quarter: 2006Q2

REPORT INFORMATION
  Report Type: 
  Country: None (occurrence: None)
  Receive Date: 20060404
  Receipt Date: 20060322
  Transmission Date: 20061013
  Serious: Yes (Hospitalization)
  Sender: FDA-Public Use
  Company Number: 222622

PATIENT
  Age: 76 Year
  Sex: Female

DRUGS (10)
  1. AVASTIN [Suspect]
     Indication: COLORECTAL CANCER METASTATIC
     Dosage: 5 MG/KG, QW2, INTRAVENOUS
     Route: 042
     Dates: start: 20060220, end: 20060303
  2. OXALIPLATIN (OXALIPLATIN) [Suspect]
     Indication: COLORECTAL CANCER METASTATIC
     Dosage: 85 MG/M2, Q2W, INTRAVENOUS
     Route: 042
     Dates: start: 20060220, end: 20060303
  3. CILOSTAZOL [Concomitant]
  4. ASPIRIN [Concomitant]
  5. FLUOROURACIL [Suspect]
     Indication: COLORECTAL CANCER METASTATIC
     Dosage: 2400 MG/M2,
     Dates: start: 20060220
  6. LEUCOVORIN CALCIUM [Suspect]
     Indication: COLORECTAL CANCER METASTATIC
     Dosage: 200 MG/M2, Q2W, INTRAVENOUS
     Route: 042
     Dates: start: 20060220, end: 20060303
  7. CALCIUM/MAGNESIUM OR PLACEBO (CALCIUM/MAGNESIUM OR PLACEBO) [Suspect]
     Indication: COLORECTAL CANCER METASTATIC
     Dosage: 1 UNIT, Q2W, INTRAVENOUS
     Route: 042
     Dates: start: 20060220, end: 20060303
  8. CLOPIDOGREL (CLOPIDOGREL) [Concomitant]
  9. ... [Concomitant]
  10. ... [Concomitant]

REACTIONS (5)
  - ANXIETY [None]
  - COLORECTAL CANCER METASTATIC [None]
  - HAEMORRHAGE [None]
  - MALIGNANT NEOPLASM PROGRESSION [None]
  - TACHYCARDIA [None]
